FAERS Safety Report 5426277-1 (Version None)
Quarter: 2007Q3

REPORT INFORMATION
  Report Type: 
  Country: None (occurrence: None)
  Receive Date: 20070731
  Receipt Date: 20070531
  Transmission Date: 20080115
  Serious: No
  Sender: FDA-Public Use
  Company Number: 2007PV029861

PATIENT
  Age: 63 Year
  Sex: Female
  Weight: 53.5 kg

DRUGS (8)
  1. EXENATIDE (EXENATIDE) PEN, DISPOSABLE [Suspect]
     Indication: TYPE 2 DIABETES MELLITUS
     Dosage: SUBCUTANEOUS, 10 UG, 2/D, 10 UG, 2/D
     Route: 058
     Dates: start: 20061101
  2. EXENATIDE (EXENATIDE) PEN, DISPOSABLE [Suspect]
     Indication: TYPE 2 DIABETES MELLITUS
     Dosage: SUBCUTANEOUS, 10 UG, 2/D, 10 UG, 2/D
     Route: 058
     Dates: start: 20061101
  3. EXENATIDE (EXENATIDE) PEN, DISPOSABLE [Suspect]
     Dosage: 10 UG, 2/D; SUBCUTANEOUS,
     Route: 058
     Dates: start: 20061101
  4. EXENATIDE (EXENATIDE) PEN, DISPOSABLE [Suspect]
     Dosage: 10 UG, 2/D, SUBCUTANEOUS
     Route: 058
     Dates: start: 20061101
  5. FLURAZEPAM [Concomitant]
  6. EFFEXOR [Concomitant]
  7. AMARYL [Concomitant]
  8. METFORMIN HCL [Concomitant]

REACTIONS (9)
  - BLOOD GLUCOSE DECREASED [None]
  - BLOOD GLUCOSE INCREASED [None]
  - DIARRHOEA [None]
  - DIZZINESS [None]
  - FALL [None]
  - FEELING ABNORMAL [None]
  - GAIT DISTURBANCE [None]
  - NERVOUSNESS [None]
  - WEIGHT DECREASED [None]
